FAERS Safety Report 6801360-4 (Version None)
Quarter: 2010Q2

REPORT INFORMATION
  Report Type: 
  Country: None (occurrence: None)
  Receive Date: 20100629
  Receipt Date: 20100624
  Transmission Date: 20101027
  Serious: Yes (Hospitalization)
  Sender: FDA-Public Use
  Company Number: A0866928A

PATIENT
  Age: 64 Year
  Sex: Female

DRUGS (8)
  1. ADVAIR DISKUS 100/50 [Suspect]
     Indication: CHRONIC OBSTRUCTIVE PULMONARY DISEASE
     Dosage: 1PUFF TWICE PER DAY
     Route: 055
     Dates: start: 20090901
  2. CHEMOTHERAPY [Suspect]
     Route: 065
  3. ZOFRAN [Concomitant]
  4. DECADRON [Concomitant]
  5. AVAPRO [Concomitant]
  6. LOPRESSOR [Concomitant]
  7. CRESTOR [Concomitant]
  8. ATIVAN [Concomitant]

REACTIONS (10)
  - ANAEMIA [None]
  - ASTHENIA [None]
  - BLOOD PRESSURE DECREASED [None]
  - BRONCHOPULMONARY ASPERGILLOSIS [None]
  - DECREASED APPETITE [None]
  - DEHYDRATION [None]
  - EJECTION FRACTION DECREASED [None]
  - MOBILITY DECREASED [None]
  - OESOPHAGITIS [None]
  - SYNCOPE [None]
